FAERS Safety Report 5819929-2 (Version None)
Quarter: 2008Q3

REPORT INFORMATION
  Report Type: 
  Country: None (occurrence: None)
  Receive Date: 20080717
  Receipt Date: 20080715
  Transmission Date: 20090109
  Serious: Yes (Death)
  Sender: FDA-Public Use
  Company Number: 2008SP014354

PATIENT
  Sex: Male

DRUGS (2)
  1. TEMODAR [Suspect]
     Indication: LUNG ADENOCARCINOMA METASTATIC
     Dosage: ;UNK;PO
     Route: 048
  2. TEMODAR [Suspect]
     Indication: OFF LABEL USE
     Dosage: ;UNK;PO
     Route: 048

REACTIONS (1)
  - DEATH [None]
